FAERS Safety Report 9332061 (Version 1)
Quarter: 2013Q2

REPORT INFORMATION
  Report Type: Spontaneous
  Country: US (occurrence: US)
  Receive Date: 20130605
  Receipt Date: 20130605
  Transmission Date: 20140414
  Serious: Yes (Other)
  Sender: FDA-Public Use
  Company Number: US-UCBSA-087190

PATIENT
  Sex: Male

DRUGS (2)
  1. KEPPRA [Suspect]
     Indication: CONVULSION
     Dosage: DOSE: 4500MG
  2. DEPAKOTE [Concomitant]
     Dosage: DOSE: 1500 MG

REACTIONS (4)
  - Meningioma [Unknown]
  - Abscess [Unknown]
  - Infection [Unknown]
  - Convulsion [Recovered/Resolved]
